FAERS Safety Report 6587914-1 (Version None)
Quarter: 2010Q1

REPORT INFORMATION
  Report Type: 
  Country: None (occurrence: None)
  Receive Date: 20100217
  Receipt Date: 20100217
  Transmission Date: 20100710
  Serious: Yes (Other)
  Sender: FDA-Public Use
  Company Number: None

PATIENT
  Sex: Male
  Weight: 70.3075 kg

DRUGS (1)
  1. GENERIC ARTIFICAL TEARS N/A N/A [Suspect]
     Indication: DRY EYE
     Dosage: 1 DROP QID OPHTHALMIC
     Route: 047
     Dates: start: 20020501, end: 20100201

REACTIONS (2)
  - DRUG INEFFECTIVE [None]
  - PRODUCT SUBSTITUTION ISSUE [None]
